FAERS Safety Report 6225942-6 (Version None)
Quarter: 2009Q2

REPORT INFORMATION
  Report Type: 
  Country: None (occurrence: None)
  Receive Date: 20090612
  Receipt Date: 20090505
  Transmission Date: 20091009
  Serious: No
  Sender: FDA-Public Use
  Company Number: US-ABBOTT-09P-163-0571678-00

PATIENT
  Sex: Female
  Weight: 70.37 kg

DRUGS (13)
  1. HUMIRA [Suspect]
     Indication: CROHN'S DISEASE
     Route: 058
     Dates: start: 20080301, end: 20090201
  2. HUMIRA [Suspect]
     Route: 058
     Dates: start: 20090505
  3. ESTRADIOL [Concomitant]
     Indication: HYSTERECTOMY
  4. LAMICTAL [Concomitant]
     Indication: BIPOLAR DISORDER
  5. FAMOTIDINE [Concomitant]
     Indication: DYSPEPSIA
  6. METHADONE HCL [Concomitant]
     Indication: NEUROPATHY PERIPHERAL
  7. TORADOL [Concomitant]
     Indication: MIGRAINE
  8. ZOFRAN [Concomitant]
     Indication: NAUSEA
  9. LORAZEPAM [Concomitant]
     Indication: ANXIETY
  10. LORAZEPAM [Concomitant]
     Indication: POST-TRAUMATIC STRESS DISORDER
  11. DILAUDID [Concomitant]
     Indication: FISTULA
  12. TOTAL PARENTAL NUTRITION [Concomitant]
     Indication: CROHN'S DISEASE
     Dosage: THROUGH PICC LINE
  13. VITAMIN B COMPLEX CAP [Concomitant]
     Indication: CROHN'S DISEASE

REACTIONS (1)
  - DRUG INEFFECTIVE [None]
